FAERS Safety Report 9705605 (Version 1)
Quarter: 2013Q4

REPORT INFORMATION
  Report Type: Spontaneous
  Country: US (occurrence: US)
  Receive Date: 20131122
  Receipt Date: 20131122
  Transmission Date: 20140711
  Serious: No
  Sender: FDA-Public Use
  Company Number: US-GILEAD-2008-0017145

PATIENT
  Age: 55 Year
  Sex: Female
  Weight: 197.77 kg

DRUGS (10)
  1. LETAIRIS [Suspect]
     Indication: PULMONARY ARTERIAL HYPERTENSION
     Route: 048
     Dates: start: 20080220, end: 20080704
  2. REVATIO [Concomitant]
  3. SYNTHROID [Concomitant]
  4. SINGULAIR [Concomitant]
  5. ALBUTEROL AER HFA [Concomitant]
  6. FLONASE [Concomitant]
  7. CLARITIN [Concomitant]
  8. ALLOPURINOL [Concomitant]
  9. INSULIN NPH [Concomitant]
  10. COUMADIN [Concomitant]

REACTIONS (1)
  - Oedema peripheral [None]
